FAERS Safety Report 5113400-1 (Version None)
Quarter: 2006Q3

REPORT INFORMATION
  Report Type: 
  Country: None (occurrence: None)
  Receive Date: 20060920
  Receipt Date: 20060908
  Transmission Date: 20061208
  Serious: Yes (Death)
  Sender: FDA-Public Use
  Company Number: 2006JP002523

PATIENT
  Age: 64 Year
  Sex: Female
  Weight: 49 kg

DRUGS (12)
  1. TACROLIMUS [Suspect]
     Indication: RHEUMATOID ARTHRITIS
     Dosage: 1.5 MG, UID/QD, ORAL
     Route: 048
     Dates: start: 20060331, end: 20060713
  2. RHEUMATREX [Suspect]
     Indication: RHEUMATOID ARTHRITIS
     Dosage: 3.5 MG, TID, ORAL
     Route: 048
     Dates: start: 20020709, end: 20060714
  3. PREDNISOLONE [Concomitant]
  4. KETOPROFEN                            SUPPOSITORY [Concomitant]
  5. DICLOFENAC SODIUM [Concomitant]
  6. GAMOFA ORODISPERSABLE CR TABLET [Concomitant]
  7. CYTOTEC [Concomitant]
  8. ALFACALCIDOL (ALFACALCIDOL) [Concomitant]
  9. ACTONEL [Concomitant]
  10. LIPITOR [Concomitant]
  11. LEUCOVORIN (CALCIUM FOLINATE) TABLET [Concomitant]
  12. FASTIC (NATEGLINIDE) TABLET [Concomitant]

REACTIONS (1)
  - INTERSTITIAL LUNG DISEASE [None]
